FAERS Safety Report 8796848 (Version 1)
Quarter: 2012Q4

REPORT INFORMATION
  Report Type: 
  Country: DK (occurrence: DK)
  Receive Date: 20120917
  Receipt Date: 20120917
  Transmission Date: 20130627
  Serious: Yes (Other)
  Sender: FDA-Public Use
  Company Number: DK-JNJFOC-20120904572

PATIENT
  Age: 28 Year
  Sex: Male
  Weight: 78 kg

DRUGS (2)
  1. ROGAINE FOR MEN EXTRA STRENGTH FOAM UNSCENTED [Suspect]
     Indication: HAIR GROWTH ABNORMAL
     Dosage: 1 application
     Route: 061
  2. ROGAINE FOR MEN EXTRA STRENGTH FOAM UNSCENTED [Suspect]
     Indication: HAIR GROWTH ABNORMAL
     Dosage: 1 application
     Route: 061

REACTIONS (2)
  - Atrioventricular block first degree [Not Recovered/Not Resolved]
  - Atrioventricular block second degree [Not Recovered/Not Resolved]
